FAERS Safety Report 26012454 (Version 1)
Quarter: 2025Q4

REPORT INFORMATION
  Report Type: Spontaneous
  Country: US (occurrence: None)
  Receive Date: 20251107
  Receipt Date: 20251107
  Transmission Date: 20260118
  Serious: Yes (Other)
  Sender: FDA-CTU
  Company Number: None

PATIENT
  Age: 57 Year
  Sex: Female
  Weight: 57.61 kg

DRUGS (8)
  1. VIZZ [Suspect]
     Active Substance: ACECLIDINE HYDROCHLORIDE
     Indication: Hypermetropia
     Dosage: 2 DROPP(S) AS NEEEDED INTO THE EYE
     Route: 050
     Dates: start: 20251030, end: 20251030
  2. ASPIRIN [Suspect]
     Active Substance: ASPIRIN
  3. VITAMINS [Concomitant]
     Active Substance: VITAMINS
  4. MAGNESIUM GLYCINATE [Concomitant]
     Active Substance: MAGNESIUM GLYCINATE
  5. CoQ10 100 mg [Concomitant]
  6. 81 mg of chewable Aspirin [Concomitant]
  7. 80 mg of Valsartan [Concomitant]
  8. 10 mg of Artovastain [Concomitant]

REACTIONS (4)
  - Headache [None]
  - Vitreous floaters [None]
  - Ocular hyperaemia [None]
  - Haemorrhage [None]

NARRATIVE: CASE EVENT DATE: 20251030
